FAERS Safety Report 8499820-6 (Version None)
Quarter: 2012Q3

REPORT INFORMATION
  Report Type: 
  Country: None (occurrence: None)
  Receive Date: 20120710
  Receipt Date: 20120705
  Transmission Date: 20120928
  Serious: Yes (Death, Other)
  Sender: FDA-Public Use
  Company Number: US-PFIZER INC-2012161738

PATIENT
  Sex: Male

DRUGS (1)
  1. REVATIO [Suspect]
     Indication: LUNG DISORDER
     Dosage: 20 MG, 1X/DAY
     Route: 048
     Dates: start: 20120501

REACTIONS (3)
  - CHRONIC OBSTRUCTIVE PULMONARY DISEASE [None]
  - ASBESTOSIS [None]
  - RESPIRATORY FAILURE [None]
